FAERS Safety Report 8196919-9 (Version None)
Quarter: 2012Q1

REPORT INFORMATION
  Report Type: 
  Country: None (occurrence: None)
  Receive Date: 20120309
  Receipt Date: 20120305
  Transmission Date: 20120608
  Serious: No
  Sender: FDA-Public Use
  Company Number: US-PFIZER INC-2012025279

PATIENT
  Sex: Female
  Weight: 72.109 kg

DRUGS (2)
  1. AVINZA [Suspect]
     Indication: NECK PAIN
     Dosage: 60 MG, 1X/DAY
     Route: 048
     Dates: start: 20100101
  2. AVINZA [Suspect]
     Indication: BACK PAIN

REACTIONS (2)
  - CONSTIPATION [None]
  - PAIN [None]
